FAERS Safety Report 8487845-6 (Version None)
Quarter: 2012Q2

REPORT INFORMATION
  Report Type: 
  Country: None (occurrence: None)
  Receive Date: 20120402
  Receipt Date: 20110315
  Transmission Date: 20120825
  Serious: Yes (Other)
  Sender: FDA-Public Use
  Company Number: PHHY2011US21475

PATIENT
  Age: 49 Year
  Sex: Female

DRUGS (2)
  1. ASPIRIN [Concomitant]
  2. EXFORGE [Suspect]
     Dosage: 160 MG VALS AND 5 MG AMLO, ORAL
     Route: 048
     Dates: start: 20110125

REACTIONS (8)
  - HEART RATE INCREASED [None]
  - FATIGUE [None]
  - NERVOUSNESS [None]
  - HYPOAESTHESIA [None]
  - SYNCOPE [None]
  - PARAESTHESIA [None]
  - MALAISE [None]
  - LIMB INJURY [None]
